FAERS Safety Report 19822770 (Version 5)
Quarter: 2021Q4

REPORT INFORMATION
  Report Type: Spontaneous
  Country: DE (occurrence: DE)
  Receive Date: 20210913
  Receipt Date: 20211019
  Transmission Date: 20220303
  Serious: Yes (Hospitalization, Other)
  Sender: FDA-Public Use
  Company Number: DE-CHIESI-2021CHF04112

PATIENT
  Age: 44 Year
  Sex: Male

DRUGS (12)
  1. PANTOPRAZOLE [Suspect]
     Active Substance: PANTOPRAZOLE
     Indication: Suicide attempt
     Dosage: UNK
     Route: 048
     Dates: start: 20210814, end: 20210814
  2. PANTOPRAZOLE [Suspect]
     Active Substance: PANTOPRAZOLE
     Dosage: UNK
     Route: 065
  3. IBUPROFEN [Suspect]
     Active Substance: IBUPROFEN
     Indication: Suicide attempt
     Dosage: 8000 MILLIGRAM, QD
     Route: 048
     Dates: start: 20210814, end: 20210814
  4. THEOPHYLLINE ANHYDROUS [Suspect]
     Active Substance: THEOPHYLLINE ANHYDROUS
     Indication: Suicide attempt
     Dosage: UNK
     Route: 048
     Dates: start: 20210814, end: 20210814
  5. FOSTER [Suspect]
     Active Substance: BECLOMETHASONE\FORMOTEROL
     Indication: Suicidal ideation
     Dosage: 200/6 MCG
     Route: 055
     Dates: start: 20210814, end: 20210814
  6. FOSTER [Suspect]
     Active Substance: BECLOMETHASONE\FORMOTEROL
     Indication: Asthma
     Dosage: UNK UNK, QD
     Route: 055
  7. FOSTER [Suspect]
     Active Substance: BECLOMETHASONE\FORMOTEROL
     Dosage: UNK UNK, QD
     Route: 055
  8. FOSTER [Suspect]
     Active Substance: BECLOMETHASONE\FORMOTEROL
     Dosage: UNK UNK, QD
     Route: 055
  9. ALBUTEROL [Suspect]
     Active Substance: ALBUTEROL
     Indication: Suicide attempt
     Dosage: UNK
     Route: 055
     Dates: start: 20210814, end: 20210814
  10. ALBUTEROL [Suspect]
     Active Substance: ALBUTEROL
     Indication: Asthma
  11. EBASTINE [Suspect]
     Active Substance: EBASTINE
     Indication: Suicide attempt
     Dosage: UNK
     Route: 048
     Dates: start: 20210814, end: 20210814
  12. EBASTINE [Suspect]
     Active Substance: EBASTINE
     Indication: Allergy to animal

REACTIONS (15)
  - Blood glucose increased [Recovering/Resolving]
  - Electrocardiogram ST segment elevation [Recovering/Resolving]
  - Chills [Recovering/Resolving]
  - Somnolence [Recovering/Resolving]
  - Blood pressure decreased [Recovering/Resolving]
  - Suicide attempt [Recovered/Resolved]
  - Hyperglycaemia [Recovering/Resolving]
  - Discoloured vomit [Recovered/Resolved]
  - Heart rate increased [Recovered/Resolved]
  - Hypokalaemia [Recovered/Resolved]
  - Toxicity to various agents [Recovered/Resolved]
  - Infection [Recovered/Resolved]
  - Body temperature decreased [Recovered/Resolved]
  - Aspiration [Unknown]
  - Drug abuse [Recovered/Resolved]

NARRATIVE: CASE EVENT DATE: 20210814
